FAERS Safety Report 9885672 (Version 1)
Quarter: 2014Q1

REPORT INFORMATION
  Report Type: Spontaneous
  Country: EG (occurrence: EG)
  Receive Date: 20140210
  Receipt Date: 20140210
  Transmission Date: 20141002
  Serious: Yes (Other)
  Sender: FDA-Public Use
  Company Number: EG-ACTAVIS-2014-02129

PATIENT
  Sex: 0

DRUGS (1)
  1. VINORELBINE ACTAVIS [Suspect]
     Indication: PRODUCT USED FOR UNKNOWN INDICATION
     Dosage: UNK
     Route: 042

REACTIONS (6)
  - Thrombophlebitis [Unknown]
  - Ulcer [Unknown]
  - Rash [Unknown]
  - Flushing [Unknown]
  - Skin burning sensation [Unknown]
  - Hypersensitivity [Unknown]
